FAERS Safety Report 4497363-8 (Version None)
Quarter: 2004Q4

REPORT INFORMATION
  Report Type: 
  Country: None (occurrence: None)
  Receive Date: 20041104
  Receipt Date: 20041022
  Transmission Date: 20050328
  Serious: Yes (Death)
  Sender: FDA-Public Use
  Company Number: 2004240996US

PATIENT
  Age: 48 Year
  Sex: Female
  Weight: 54.4 kg

DRUGS (2)
  1. HALCION [Suspect]
     Indication: CIRCADIAN RHYTHM SLEEP DISORDER
     Dosage: ORAL
     Route: 048
  2. WELLBUTRIN [Concomitant]

REACTIONS (8)
  - AGITATION [None]
  - ANXIETY [None]
  - COMPLETED SUICIDE [None]
  - INDIFFERENCE [None]
  - INTENTIONAL OVERDOSE [None]
  - PERSONALITY CHANGE [None]
  - UNEVALUABLE EVENT [None]
  - WEIGHT DECREASED [None]
